FAERS Safety Report 5671678-X (Version None)
Quarter: 2008Q2

REPORT INFORMATION
  Report Type: 
  Country: None (occurrence: None)
  Receive Date: 20080229
  Receipt Date: 20071217
  Transmission Date: 20081010
  Serious: No
  Sender: FDA-Public Use
  Company Number: PHEH2007US14933

PATIENT
  Age: 74 Year
  Sex: Male

DRUGS (1)
  1. EXJADE [Suspect]
     Indication: IRON OVERLOAD
     Dosage: 3 G, QD, ORAL
     Route: 048
     Dates: start: 20070727

REACTIONS (3)
  - DISCOMFORT [None]
  - NAUSEA [None]
  - VOMITING [None]
